FAERS Safety Report 7141072-3 (Version None)
Quarter: 2010Q4

REPORT INFORMATION
  Report Type: 
  Country: None (occurrence: None)
  Receive Date: 20101201
  Receipt Date: 20101201
  Transmission Date: 20110411
  Serious: Yes (Hospitalization)
  Sender: FDA-Public Use
  Company Number: None

PATIENT
  Age: 75 Year
  Sex: Male
  Weight: 66.6 kg

DRUGS (1)
  1. WARFARIN SODIUM [Suspect]
     Indication: CEREBROVASCULAR ACCIDENT PROPHYLAXIS
     Dates: start: 19950321, end: 20101122

REACTIONS (2)
  - GASTRIC ULCER HAEMORRHAGE [None]
  - INTERNATIONAL NORMALISED RATIO INCREASED [None]
